FAERS Safety Report 9559291 (Version 2)
Quarter: 2014Q1

REPORT INFORMATION
  Report Type: Spontaneous
  Country: US (occurrence: None)
  Receive Date: 20130925
  Receipt Date: 20140331
  Transmission Date: 20141002
  Serious: Yes (Death, Other)
  Sender: FDA-Public Use
  Company Number: UTC-038129

PATIENT
  Age: 51 Year
  Sex: Female
  Weight: 66.8 kg

DRUGS (2)
  1. TYVASO (6 MICROGRAM, AEROSOL FOR INHALATION) (TREPROSTINIL SODIUM) [Suspect]
     Indication: PULMONARY ARTERIAL HYPERTENSION
     Route: 055
     Dates: start: 20130810
  2. ADCIRCA (TADALAFIL) (UNKNOWN) [Concomitant]

REACTIONS (2)
  - Death [None]
  - Aortic rupture [None]
